FAERS Safety Report 7495890-2 (Version None)
Quarter: 2011Q2

REPORT INFORMATION
  Report Type: 
  Country: None (occurrence: None)
  Receive Date: 20110523
  Receipt Date: 20110517
  Transmission Date: 20111010
  Serious: Yes (Other)
  Sender: FDA-Public Use
  Company Number: US-BRISTOL-MYERS SQUIBB COMPANY-15750698

PATIENT
  Age: 65 Year
  Sex: Female

DRUGS (9)
  1. MAGNESIUM [Concomitant]
  2. PLAQUENIL [Concomitant]
  3. FERROUS SULFATE TAB [Concomitant]
  4. KLONOPIN [Concomitant]
  5. ASPIRIN [Concomitant]
  6. COLACE [Concomitant]
  7. COREG [Concomitant]
  8. COUMADIN [Suspect]
  9. TOPAMAX [Concomitant]

REACTIONS (2)
  - CARDIAC OPERATION [None]
  - INTERNATIONAL NORMALISED RATIO INCREASED [None]
